FAERS Safety Report 5744087-2 (Version None)
Quarter: 2008Q2

REPORT INFORMATION
  Report Type: 
  Country: None (occurrence: None)
  Receive Date: 20080520
  Receipt Date: 20080516
  Transmission Date: 20081010
  Serious: Yes (Death)
  Sender: FDA-Public Use
  Company Number: A0699347A

PATIENT
  Age: 9 Year
  Sex: Female

DRUGS (6)
  1. ADVAIR DISKUS 100/50 [Suspect]
     Indication: ASTHMA
     Route: 055
     Dates: end: 20010804
  2. ALLEGRA [Concomitant]
  3. ALBUTEROL [Concomitant]
  4. MAXAIR [Concomitant]
  5. PREDNISONE TAB [Concomitant]
  6. XOPENEX [Concomitant]

REACTIONS (9)
  - ANOXIC ENCEPHALOPATHY [None]
  - ASTHMA [None]
  - DYSPNOEA [None]
  - INFLUENZA LIKE ILLNESS [None]
  - LOSS OF CONSCIOUSNESS [None]
  - LUNG HYPERINFLATION [None]
  - OTITIS EXTERNA [None]
  - RESPIRATORY ARREST [None]
  - VENTRICULAR TACHYCARDIA [None]
